FAERS Safety Report 10676725 (Version 2)
Quarter: 2015Q1

REPORT INFORMATION
  Report Type: Spontaneous
  Country: US (occurrence: US)
  Receive Date: 20141226
  Receipt Date: 20150119
  Transmission Date: 20150720
  Serious: No
  Sender: FDA-Public Use
  Company Number: US-SHIRE-US201408850

PATIENT
  Sex: Female
  Weight: 68.27 kg

DRUGS (6)
  1. VYVANSE [Suspect]
     Active Substance: LISDEXAMFETAMINE DIMESYLATE
     Indication: ATTENTION DEFICIT/HYPERACTIVITY DISORDER
     Dosage: 50 MG, UNKNOWN
     Route: 048
     Dates: end: 2014
  2. VYVANSE [Suspect]
     Active Substance: LISDEXAMFETAMINE DIMESYLATE
     Dosage: 30 UNK, 1X/DAY:QD
     Route: 048
     Dates: start: 201411, end: 201411
  3. CLARITIN [Concomitant]
     Active Substance: LORATADINE
     Indication: HYPERSENSITIVITY
     Dosage: 10 MG, 1X/DAY:QD
     Route: 048
  4. DEXEDRINE [Concomitant]
     Active Substance: DEXTROAMPHETAMINE SULFATE
     Indication: PRODUCT USED FOR UNKNOWN INDICATION
     Dosage: UNK, 1X/DAY:QD (IN THE EVENINGS)
     Route: 065
  5. VYVANSE [Suspect]
     Active Substance: LISDEXAMFETAMINE DIMESYLATE
     Dosage: 70 MG, 1X/DAY:QD
     Route: 048
     Dates: start: 201411, end: 201411
  6. CYMBALTA [Concomitant]
     Active Substance: DULOXETINE HYDROCHLORIDE
     Indication: DEPRESSION
     Dosage: 60 MG, 1X/DAY:QD
     Route: 048

REACTIONS (6)
  - Feeling jittery [Recovered/Resolved]
  - Drug effect decreased [Unknown]
  - Palpitations [Unknown]
  - Blood pressure increased [Unknown]
  - Drug effect increased [Recovered/Resolved]
  - Tremor [Unknown]

NARRATIVE: CASE EVENT DATE: 2014
